FAERS Safety Report 10003623 (Version 1)
Quarter: 2014Q1

REPORT INFORMATION
  Report Type: Spontaneous
  Country: US (occurrence: US)
  Receive Date: 20140312
  Receipt Date: 20140312
  Transmission Date: 20141002
  Serious: No
  Sender: FDA-Public Use
  Company Number: US-ABBVIE-13P-163-1120702-00

PATIENT
  Age: 57 Year
  Sex: Male

DRUGS (1)
  1. DEPAKOTE [Suspect]
     Indication: MIGRAINE
     Dosage: 1000 MILLIGRAMS DAILY
     Dates: start: 201306, end: 201307

REACTIONS (1)
  - Liver function test abnormal [Unknown]
